FAERS Safety Report 8486656-5 (Version None)
Quarter: 2012Q3

REPORT INFORMATION
  Report Type: 
  Country: None (occurrence: None)
  Receive Date: 20120703
  Receipt Date: 20120618
  Transmission Date: 20120928
  Serious: Yes (Other)
  Sender: FDA-Public Use
  Company Number: CHPA2012US013221

PATIENT
  Age: 58 Year
  Sex: Female

DRUGS (5)
  1. EXCEDRIN EXTRA STRENGTH TABLETS [Suspect]
     Dosage: 2 DF, QD
     Route: 048
     Dates: start: 19980101, end: 20090101
  2. EXCEDRIN EXTRA STRENGTH TABLETS [Suspect]
     Dosage: 1 DF, 3 TIMES A WEEK
     Route: 048
     Dates: start: 19840101, end: 19840101
  3. EXCEDRIN EXTRA STRENGTH TABLETS [Suspect]
     Dosage: 1 DF, EVERY WEEKEND
     Route: 048
     Dates: start: 19850101, end: 19980101
  4. EXCEDRIN EXTRA STRENGTH TABLETS [Suspect]
     Indication: HANGOVER
     Dosage: 2 DF, PRN
     Route: 048
     Dates: start: 20090101
  5. EXCEDRIN EXTRA STRENGTH TABLETS [Suspect]
     Dosage: 0.5 DF, UNK
     Route: 048
     Dates: start: 19840101, end: 19850101

REACTIONS (12)
  - MOBILITY DECREASED [None]
  - ARTHRALGIA [None]
  - PHARYNGITIS STREPTOCOCCAL [None]
  - OSTEOARTHRITIS [None]
  - OFF LABEL USE [None]
  - INCORRECT DRUG ADMINISTRATION DURATION [None]
  - ARTHRITIS [None]
  - TREMOR [None]
  - WRONG TECHNIQUE IN DRUG USAGE PROCESS [None]
  - UNDERDOSE [None]
  - CONJUNCTIVITIS [None]
  - NASOPHARYNGITIS [None]
